FAERS Safety Report 18579544 (Version 1)
Quarter: 2020Q4

REPORT INFORMATION
  Report Type: Spontaneous
  Country: US (occurrence: US)
  Receive Date: 20201204
  Receipt Date: 20201204
  Transmission Date: 20210114
  Serious: Yes (Other)
  Sender: FDA-Public Use
  Company Number: US-BAYER-2020-261275

PATIENT
  Sex: Female

DRUGS (1)
  1. KYLEENA [Suspect]
     Active Substance: LEVONORGESTREL
     Indication: POLYMENORRHAGIA
     Dosage: 17.5?G PER DAY, CONTINUOUSLY
     Route: 015
     Dates: start: 20190213

REACTIONS (1)
  - Metrorrhagia [Not Recovered/Not Resolved]
